FAERS Safety Report 4900708-5 (Version None)
Quarter: 2006Q1

REPORT INFORMATION
  Report Type: 
  Country: None (occurrence: None)
  Receive Date: 20060201
  Receipt Date: 20060117
  Transmission Date: 20060701
  Serious: Yes (Hospitalization)
  Sender: FDA-Public Use
  Company Number: 221529

PATIENT
  Age: 48 Year
  Sex: Female

DRUGS (3)
  1. AVASTIN [Suspect]
     Indication: OVARIAN CANCER
     Dosage: SEE IMAGE
     Dates: start: 20050302, end: 20050525
  2. AVASTIN [Suspect]
     Indication: OVARIAN CANCER
     Dosage: SEE IMAGE
     Dates: start: 20050601
  3. PACLITAXEL [Concomitant]

REACTIONS (8)
  - ANAEMIA [None]
  - DEHYDRATION [None]
  - GASTROINTESTINAL STOMA COMPLICATION [None]
  - GENERAL PHYSICAL HEALTH DETERIORATION [None]
  - INTESTINAL PERFORATION [None]
  - METASTASES TO MENINGES [None]
  - OPEN WOUND [None]
  - RENAL FAILURE ACUTE [None]
